FAERS Safety Report 7301524-X (Version None)
Quarter: 2011Q1

REPORT INFORMATION
  Report Type: 
  Country: None (occurrence: None)
  Receive Date: 20110218
  Receipt Date: 20101124
  Transmission Date: 20110831
  Serious: No
  Sender: FDA-Public Use
  Company Number: US-BRISTOL-MYERS SQUIBB COMPANY-15399983

PATIENT

DRUGS (1)
  1. KENALOG [Suspect]
     Route: 030

REACTIONS (1)
  - DRUG INEFFECTIVE [None]
